FAERS Safety Report 15887306 (Version 1)
Quarter: 2019Q1

REPORT INFORMATION
  Report Type: Spontaneous
  Country: TR (occurrence: TR)
  Receive Date: 20190130
  Receipt Date: 20190130
  Transmission Date: 20190417
  Serious: Yes (Death)
  Sender: FDA-Public Use
  Company Number: TR-SA-2019SA020261

PATIENT
  Age: 52 Year
  Sex: Male

DRUGS (5)
  1. MITOMYCIN. [Concomitant]
     Active Substance: MITOMYCIN
     Indication: BLADDER CANCER
  2. BCG FOR IMMUNOTHERAPY [Suspect]
     Active Substance: BACILLUS CALMETTE-GUERIN ANTIGEN, UNSPECIFIED SUBSTRAIN
     Indication: BLADDER CANCER
     Dosage: UNK
     Route: 043
  3. ISONIAZIDE [Concomitant]
     Active Substance: ISONIAZID
  4. ETHAMBUTOL [Concomitant]
     Active Substance: ETHAMBUTOL HYDROCHLORIDE
  5. BCG FOR IMMUNOTHERAPY [Suspect]
     Active Substance: BACILLUS CALMETTE-GUERIN ANTIGEN, UNSPECIFIED SUBSTRAIN
     Dosage: UNK
     Route: 043

REACTIONS (9)
  - Acute respiratory failure [Fatal]
  - Haematuria [Fatal]
  - Respiratory distress [Fatal]
  - Acute kidney injury [Fatal]
  - Sepsis [Fatal]
  - Malaise [Fatal]
  - Pyrexia [Fatal]
  - Cardiac arrest [Fatal]
  - Hypotension [Fatal]
